FAERS Safety Report 10953250 (Version 1)
Quarter: 2015Q1

REPORT INFORMATION
  Report Type: Spontaneous
  Country: US (occurrence: US)
  Receive Date: 20150325
  Receipt Date: 20150325
  Transmission Date: 20150721
  Serious: No
  Sender: FDA-Public Use
  Company Number: US-ASTRAZENECA-2015SE24750

PATIENT
  Sex: Male

DRUGS (3)
  1. SULPHONYLUREA [Concomitant]
  2. METFORMIN [Concomitant]
     Active Substance: METFORMIN HYDROCHLORIDE
  3. BYDUREON [Suspect]
     Active Substance: EXENATIDE
     Indication: TYPE 2 DIABETES MELLITUS
     Route: 065
     Dates: start: 201502

REACTIONS (3)
  - Injection site erythema [Unknown]
  - Injection site nodule [Unknown]
  - Injection site scar [Unknown]

NARRATIVE: CASE EVENT DATE: 201502
